FAERS Safety Report 23769320 (Version 2)
Quarter: 2025Q1

REPORT INFORMATION
  Report Type: Report from Study
  Country: FR (occurrence: FR)
  Receive Date: 20240422
  Receipt Date: 20250327
  Transmission Date: 20250408
  Serious: Yes (Hospitalization, Other)
  Sender: MYLAN
  Company Number: None

PATIENT
  Age: 71 Year
  Sex: Male
  Weight: 58 kg

DRUGS (14)
  1. APIXABAN [Suspect]
     Active Substance: APIXABAN
     Indication: Jugular vein thrombosis
     Dosage: 5 MILLIGRAM, BID (12 HR)
     Dates: start: 20231101, end: 20240209
  2. APIXABAN [Suspect]
     Active Substance: APIXABAN
     Indication: Thrombosis
     Dosage: 5 MILLIGRAM, QD
     Dates: start: 20240311, end: 20240315
  3. ZONGERTINIB [Suspect]
     Active Substance: ZONGERTINIB
     Indication: Non-small cell lung cancer stage IV
     Dosage: 120 MILLIGRAM, QD
     Dates: start: 20240202, end: 20240214
  4. ZONGERTINIB [Suspect]
     Active Substance: ZONGERTINIB
     Dosage: 60 MILLIGRAM, QD
     Dates: start: 20240412, end: 20240429
  5. URSODIOL [Concomitant]
     Active Substance: URSODIOL
     Dosage: 250 MILLIGRAM, QD
  6. BISOPROLOL [Concomitant]
     Active Substance: BISOPROLOL
     Indication: Myocardial infarction
     Dosage: 5 MILLIGRAM, QD
  7. VILANTEROL TRIFENATATE [Concomitant]
     Active Substance: VILANTEROL TRIFENATATE
     Dosage: 22 MICROGRAM, QD
  8. KARDEGIC [Concomitant]
     Active Substance: ASPIRIN DL-LYSINE
     Dosage: 75 MILLIGRAM, QD
  9. LORAZEPAM [Concomitant]
     Active Substance: LORAZEPAM
     Dosage: 1 MILLIGRAM, QD
  10. NITROGLYCERIN [Concomitant]
     Active Substance: NITROGLYCERIN
     Dosage: 0.15 MILLIGRAM, QD
  11. UMECLIDINIUM [Concomitant]
     Active Substance: UMECLIDINIUM
     Dosage: 55 MICROGRAM, QD
  12. ATORVASTATIN [Concomitant]
     Active Substance: ATORVASTATIN
     Dosage: 80 MILLIGRAM, QD
  13. NITROGLYCERIN [Concomitant]
     Active Substance: NITROGLYCERIN
     Dosage: 0.15 MILLIGRAM, QD
  14. ALBUTEROL [Concomitant]
     Active Substance: ALBUTEROL

REACTIONS (7)
  - Hepatic cytolysis [Recovering/Resolving]
  - Hepatitis [Recovered/Resolved]
  - Epistaxis [Not Recovered/Not Resolved]
  - Paraesthesia oral [Unknown]
  - Dry mouth [Unknown]
  - Weight decreased [Unknown]
  - Decreased appetite [Unknown]

NARRATIVE: CASE EVENT DATE: 20240209
